FAERS Safety Report 17757663 (Version 1)
Quarter: 2020Q2

REPORT INFORMATION
  Report Type: Spontaneous
  Country: CN (occurrence: CN)
  Receive Date: 20200507
  Receipt Date: 20200507
  Transmission Date: 20200714
  Serious: Yes (Hospitalization)
  Sender: FDA-Public Use
  Company Number: CN-ALLERGAN-2017934US

PATIENT
  Sex: Female

DRUGS (10)
  1. CEFTAZIDIME;AVIBACTAM - BP [Suspect]
     Active Substance: AVIBACTAM SODIUM\CEFTAZIDIME
     Dosage: 2.5 G, Q8HR
     Route: 042
     Dates: start: 20200416, end: 20200417
  2. CEFTAZIDIME;AVIBACTAM - BP [Suspect]
     Active Substance: AVIBACTAM SODIUM\CEFTAZIDIME
     Indication: PNEUMONIA
     Dosage: 2.5 G, Q8HR
     Route: 042
     Dates: start: 20200420
  3. CEFTAZIDIME;AVIBACTAM - BP [Suspect]
     Active Substance: AVIBACTAM SODIUM\CEFTAZIDIME
     Dosage: 1.25 G, Q8HR
     Route: 042
     Dates: start: 20200418, end: 20200419
  4. NORMAL SALINE [Concomitant]
     Active Substance: SODIUM CHLORIDE
     Indication: PRODUCT USED FOR UNKNOWN INDICATION
     Dosage: 20 ML, QD
     Route: 042
     Dates: start: 20200416, end: 20200421
  5. ADEMETIONINE 1,4-BUTANEDISULFONATE [Concomitant]
     Indication: LIVER DISORDER
     Dosage: 1 G, QD
     Route: 042
  6. ESOMEPRAZOLE SODIUM. [Concomitant]
     Active Substance: ESOMEPRAZOLE SODIUM
     Indication: DYSPEPSIA
     Dosage: 40 MG, QD
     Route: 042
     Dates: start: 20200416, end: 20200421
  7. EXACIN [Concomitant]
     Indication: PNEUMONIA
     Dosage: 0.4 G, QD
     Route: 042
     Dates: start: 20200417, end: 20200422
  8. POLYENE PHOSPHATIDYLCHOLINE [Concomitant]
     Active Substance: PHOSPHOLIPID
     Indication: LIVER DISORDER
     Dosage: 10 ML, BID
     Route: 042
  9. URSODEOXYCHOLIC ACID [Concomitant]
     Active Substance: URSODIOL
     Indication: LIVER DISORDER
     Dosage: 0.25 G, QD
     Route: 048
  10. VANCOMYCIN [Concomitant]
     Active Substance: VANCOMYCIN
     Indication: INFECTION
     Dosage: 0.5 G, Q12H
     Route: 042

REACTIONS (6)
  - Hepatic function abnormal [Recovering/Resolving]
  - Yellow skin [Recovering/Resolving]
  - Cholestasis [Recovering/Resolving]
  - Drug ineffective [Unknown]
  - Chromaturia [Recovering/Resolving]
  - Condition aggravated [Recovering/Resolving]

NARRATIVE: CASE EVENT DATE: 20200417
